FAERS Safety Report 16897091 (Version 1)
Quarter: 2019Q4

REPORT INFORMATION
  Report Type: Spontaneous
  Country: US (occurrence: US)
  Receive Date: 20191009
  Receipt Date: 20191009
  Transmission Date: 20200122
  Serious: No
  Sender: FDA-Public Use
  Company Number: US-HTU-2019US019568

PATIENT
  Sex: Female

DRUGS (3)
  1. DESONIDE. [Concomitant]
     Active Substance: DESONIDE
  2. ELIDEL [Concomitant]
     Active Substance: PIMECROLIMUS
  3. VALCHLOR [Suspect]
     Active Substance: MECHLORETHAMINE
     Indication: CUTANEOUS T-CELL LYMPHOMA
     Dosage: UNK, SINGLE
     Route: 061
     Dates: start: 20190713

REACTIONS (2)
  - Pruritus [Unknown]
  - Irritability [Unknown]
